FAERS Safety Report 6935480-0 (Version None)
Quarter: 2010Q3

REPORT INFORMATION
  Report Type: 
  Country: None (occurrence: None)
  Receive Date: 20100823
  Receipt Date: 20100812
  Transmission Date: 20110219
  Serious: No
  Sender: FDA-Public Use
  Company Number: US-BIOGENIDEC-2010BI028107

PATIENT
  Age: 51 Year
  Sex: Female

DRUGS (3)
  1. TYSABRI [Suspect]
     Indication: MULTIPLE SCLEROSIS
     Route: 042
     Dates: start: 20050106, end: 20050101
  2. TYSABRI [Suspect]
     Route: 042
     Dates: start: 20070305, end: 20070517
  3. TYSABRI [Suspect]
     Route: 042
     Dates: start: 20080407

REACTIONS (1)
  - SPINAL CORD INJURY [None]
